FAERS Safety Report 19132327 (Version 1)
Quarter: 2021Q2

REPORT INFORMATION
  Report Type: Spontaneous
  Country: US (occurrence: US)
  Receive Date: 20210413
  Receipt Date: 20210413
  Transmission Date: 20210717
  Serious: Yes (Life-Threatening, Hospitalization)
  Sender: FDA-Public Use
  Company Number: US-TEVA-2021-US-1898231

PATIENT
  Age: 64 Year
  Sex: Female

DRUGS (2)
  1. METFORMIN [Suspect]
     Active Substance: METFORMIN HYDROCHLORIDE
     Indication: PRODUCT USED FOR UNKNOWN INDICATION
     Route: 065
  2. LISINOPRIL. [Suspect]
     Active Substance: LISINOPRIL
     Indication: PRODUCT USED FOR UNKNOWN INDICATION
     Route: 065

REACTIONS (7)
  - Lactic acidosis [Recovering/Resolving]
  - Acute kidney injury [Recovered/Resolved]
  - Respiratory distress [Recovering/Resolving]
  - Chronic kidney disease [Recovered/Resolved]
  - Encephalopathy [Recovering/Resolving]
  - Metabolic acidosis [Recovering/Resolving]
  - Sepsis [Recovering/Resolving]
